FAERS Safety Report 12989637 (Version 1)
Quarter: 2016Q4

REPORT INFORMATION
  Report Type: Spontaneous
  Country: FR (occurrence: FR)
  Receive Date: 20161201
  Receipt Date: 20161201
  Transmission Date: 20170207
  Serious: Yes (Death)
  Sender: FDA-Public Use
  Company Number: FR-AUROBINDO-AUR-APL-2016-14526

PATIENT
  Age: 87 Year
  Sex: Male

DRUGS (3)
  1. FUROSEMIDE. [Suspect]
     Active Substance: FUROSEMIDE
     Indication: PRODUCT USED FOR UNKNOWN INDICATION
     Dosage: 40 MG, FOUR TIMES/DAY
     Route: 048
  2. BISOCE [Suspect]
     Active Substance: BISOPROLOL
     Indication: HYPERTENSION
     Dosage: 1 DF, DAILY
     Route: 048
  3. MEMANTINE ARROW SCORED FILM-COATED TABLETS 10MG [Suspect]
     Active Substance: MEMANTINE
     Indication: DEMENTIA ALZHEIMER^S TYPE
     Dosage: 1 DF, DAILY
     Route: 048

REACTIONS (3)
  - Acute kidney injury [Fatal]
  - Dehydration [Fatal]
  - Pneumonia aspiration [None]

NARRATIVE: CASE EVENT DATE: 20160902
